FAERS Safety Report 4479228-0 (Version None)
Quarter: 2004Q4

REPORT INFORMATION
  Report Type: 
  Country: None (occurrence: None)
  Receive Date: 20041015
  Receipt Date: 20041004
  Transmission Date: 20050328
  Serious: Yes (Hospitalization)
  Sender: FDA-Public Use
  Company Number: 2004JP001780

PATIENT
  Age: 37 Year
  Sex: Male
  Weight: 54 kg

DRUGS (10)
  1. PROGRAF [Suspect]
     Indication: RENAL TRANSPLANT
     Dosage: 4.5 + 2.00 + 1.50 + 2.00 + 3.50 + 5.50 + 2.00 MD, TID, ORAL SEE IMAGE
     Route: 048
     Dates: start: 20040714, end: 20040719
  2. PROGRAF [Suspect]
     Indication: RENAL TRANSPLANT
     Dosage: 4.5 + 2.00 + 1.50 + 2.00 + 3.50 + 5.50 + 2.00 MD, TID, ORAL SEE IMAGE
     Route: 048
     Dates: start: 20040720, end: 20040722
  3. PROGRAF [Suspect]
     Indication: RENAL TRANSPLANT
     Dosage: 4.5 + 2.00 + 1.50 + 2.00 + 3.50 + 5.50 + 2.00 MD, TID, ORAL SEE IMAGE
     Route: 048
     Dates: start: 20040723, end: 20040724
  4. PROGRAF [Suspect]
     Indication: RENAL TRANSPLANT
     Dosage: 4.5 + 2.00 + 1.50 + 2.00 + 3.50 + 5.50 + 2.00 MD, TID, ORAL SEE IMAGE
     Route: 048
     Dates: start: 20040725, end: 20040728
  5. PROGRAF [Suspect]
     Indication: RENAL TRANSPLANT
     Dosage: 4.5 + 2.00 + 1.50 + 2.00 + 3.50 + 5.50 + 2.00 MD, TID, ORAL SEE IMAGE
     Route: 048
     Dates: start: 20040729, end: 20040801
  6. PROGRAF [Suspect]
     Indication: RENAL TRANSPLANT
     Dosage: 4.5 + 2.00 + 1.50 + 2.00 + 3.50 + 5.50 + 2.00 MD, TID, ORAL SEE IMAGE
     Route: 048
     Dates: start: 20040802, end: 20040815
  7. PROGRAF [Suspect]
     Indication: RENAL TRANSPLANT
     Dosage: 4.5 + 2.00 + 1.50 + 2.00 + 3.50 + 5.50 + 2.00 MD, TID, ORAL SEE IMAGE
     Route: 048
     Dates: start: 20040901
  8. NEORAL [Suspect]
     Indication: RENAL TRANSPLANT
     Dosage: 250.00 + 150.00 MG, BID, ORAL
     Route: 048
     Dates: start: 20040816, end: 20040827
  9. NEORAL [Suspect]
     Indication: RENAL TRANSPLANT
     Dosage: 250.00 + 150.00 MG, BID, ORAL
     Route: 048
     Dates: start: 20040828, end: 20040831
  10. CELLCEPT [Concomitant]

REACTIONS (2)
  - RENAL TRANSPLANT [None]
  - RHABDOMYOLYSIS [None]
